FAERS Safety Report 9804719 (Version 2)
Quarter: 2014Q1

REPORT INFORMATION
  Report Type: Spontaneous
  Country: US (occurrence: US)
  Receive Date: 20140108
  Receipt Date: 20140108
  Transmission Date: 20141002
  Serious: Yes (Hospitalization)
  Sender: FDA-Public Use
  Company Number: US-B.I. PHARMACEUTICALS,INC./RIDGEFIELD-2013-BI-22872BP

PATIENT
  Age: 72 Year
  Sex: Female
  Weight: 90.72 kg

DRUGS (18)
  1. PRADAXA [Suspect]
     Indication: ATRIAL FIBRILLATION
     Dosage: 300 MG
     Dates: start: 20110318, end: 20110422
  2. SINGULAIR [Concomitant]
     Dosage: 10 MG
     Dates: start: 2004
  3. ASPIRIN [Concomitant]
     Dosage: 325 MG
  4. NEXIUM [Concomitant]
     Dosage: 40 MG
  5. PREDNISONE [Concomitant]
     Dosage: 10 MG
  6. LASIX [Concomitant]
     Dosage: 160 MG
  7. POTASSIUM [Concomitant]
     Dosage: 80 MEQ
  8. VENTOLIN HFA [Concomitant]
     Dosage: 6 PUF
  9. ISOSORBIDE [Concomitant]
     Dosage: 120 MG
  10. SIMVASTATIN [Concomitant]
     Dosage: 40 MG
  11. FERROUS SULFATE [Concomitant]
     Dosage: 325 MG
  12. PULMICORT [Concomitant]
     Route: 055
  13. NITROGLYCERIN [Concomitant]
     Indication: CHEST PAIN
     Route: 060
  14. MIRALAX [Concomitant]
     Indication: CONSTIPATION
  15. HYDROXYZINE [Concomitant]
  16. ALBUTEROL [Concomitant]
     Dosage: 10 MG
  17. COUMADIN [Concomitant]
     Dosage: 1 MG
     Route: 048
  18. IMDUR [Concomitant]
     Dosage: 120 MG

REACTIONS (7)
  - Bronchiectasis [Unknown]
  - Chronic obstructive pulmonary disease [Unknown]
  - Acute myocardial infarction [Unknown]
  - Cardiac failure congestive [Unknown]
  - Haemoptysis [Unknown]
  - Haematuria [Unknown]
  - Epistaxis [Unknown]
